FAERS Safety Report 6034221-1 (Version None)
Quarter: 2009Q1

REPORT INFORMATION
  Report Type: 
  Country: None (occurrence: None)
  Receive Date: 20090112
  Receipt Date: 20081229
  Transmission Date: 20090719
  Serious: Yes (Other)
  Sender: FDA-Public Use
  Company Number: DE-ROCHE-606729

PATIENT
  Age: 10 Year
  Sex: Male

DRUGS (4)
  1. MYCOPHENOLATE MOFETIL [Suspect]
     Route: 065
  2. RITUXIMAB [Suspect]
     Dosage: A SINGLE DOSE OF RITUXIMAB (375 MG/M2 BODY SURFACE AREA) 1 WEEK AFTER THE LAST IVIG INFUSION
     Route: 065
  3. CSA [Suspect]
     Route: 065
  4. METHYLPREDNISOLONE 16MG TAB [Suspect]
     Route: 065

REACTIONS (2)
  - NEPHROPATHY TOXIC [None]
  - TRANSPLANT REJECTION [None]
